FAERS Safety Report 9678720 (Version 1)
Quarter: 2013Q4

REPORT INFORMATION
  Report Type: Spontaneous
  Country: US (occurrence: US)
  Receive Date: 20131108
  Receipt Date: 20131108
  Transmission Date: 20140711
  Serious: No
  Sender: FDA-Public Use
  Company Number: US-PFIZER INC-2013318312

PATIENT
  Sex: Male

DRUGS (1)
  1. ZOLOFT [Suspect]
     Dosage: UNK

REACTIONS (11)
  - Anxiety [Unknown]
  - Asthenia [Unknown]
  - Fatigue [Unknown]
  - Apathy [Unknown]
  - Social avoidant behaviour [Unknown]
  - Irritability [Unknown]
  - Appetite disorder [Unknown]
  - Myalgia [Unknown]
  - Tension [Unknown]
  - Palpitations [Unknown]
  - Negative thoughts [Unknown]
